FAERS Safety Report 13067497 (Version 1)
Quarter: 2016Q4

REPORT INFORMATION
  Report Type: Spontaneous
  Country: US (occurrence: US)
  Receive Date: 20161228
  Receipt Date: 20161228
  Transmission Date: 20170207
  Serious: Yes (Other)
  Sender: FDA-Public Use
  Company Number: US-AUROBINDO-AUR-APL-2013-01482

PATIENT
  Age: 65 Year
  Sex: Male
  Weight: 156.2 kg

DRUGS (3)
  1. U-500 INSULIN [Suspect]
     Active Substance: INSULIN HUMAN
     Dosage: UNK UNK,UNK,,250 UNITS DAILY
     Route: 065
  2. METFORMIN HYDROCHLORIDE TABLETS USP 500 MG [Suspect]
     Active Substance: METFORMIN HYDROCHLORIDE
     Indication: TYPE 2 DIABETES MELLITUS
     Dosage: UNK UNK,UNK,
     Route: 065
  3. U-500 INSULIN [Suspect]
     Active Substance: INSULIN HUMAN
     Indication: TYPE 2 DIABETES MELLITUS
     Dosage: UNK UNK,UNK,,TITRATED TO 575 UNITS DAILY
     Route: 065

REACTIONS (2)
  - Hypoglycaemia [Recovering/Resolving]
  - Diabetes mellitus inadequate control [Recovering/Resolving]
